FAERS Safety Report 14292931 (Version 4)
Quarter: 2018Q1

REPORT INFORMATION
  Report Type: Spontaneous
  Country: SG (occurrence: SG)
  Receive Date: 20171215
  Receipt Date: 20180105
  Transmission Date: 20180509
  Serious: Yes (Other)
  Sender: FDA-Public Use
  Company Number: SG-PFIZER INC-2017530519

PATIENT
  Age: 40 Year
  Sex: Female
  Weight: 52 kg

DRUGS (5)
  1. PROPOFOL. [Concomitant]
     Active Substance: PROPOFOL
     Indication: INDUCTION OF ANAESTHESIA
     Dosage: UNK
     Route: 042
  2. FENTANYL. [Concomitant]
     Active Substance: FENTANYL
     Indication: INDUCTION OF ANAESTHESIA
     Dosage: UNK
     Route: 042
  3. LIDOCAINE HCL [Suspect]
     Active Substance: LIDOCAINE HYDROCHLORIDE
     Indication: ANAESTHESIA
     Dosage: UNK
  4. SEVOFLURANE. [Concomitant]
     Active Substance: SEVOFLURANE
     Indication: MAINTENANCE OF ANAESTHESIA
     Dosage: 3%
  5. OXYGEN. [Concomitant]
     Active Substance: OXYGEN
     Indication: MAINTENANCE OF ANAESTHESIA
     Dosage: 50%

REACTIONS (1)
  - Nerve injury [Recovering/Resolving]
